FAERS Safety Report 5768153-0 (Version None)
Quarter: 2008Q2

REPORT INFORMATION
  Report Type: 
  Country: None (occurrence: None)
  Receive Date: 20080612
  Receipt Date: 20080602
  Transmission Date: 20081010
  Serious: Yes (Congenital Anomaly)
  Sender: FDA-Public Use
  Company Number: US-GILEAD-2008-0016702

PATIENT
  Sex: Female

DRUGS (3)
  1. TRUVADA [Suspect]
     Route: 048
     Dates: start: 20080130
  2. ATRIPLA [Suspect]
     Dosage: 300/200/600
     Route: 048
     Dates: start: 20070601, end: 20080130
  3. KALETRA [Concomitant]
     Dosage: 400/500
     Route: 048
     Dates: start: 20080130

REACTIONS (2)
  - PREGNANCY [None]
  - ULTRASOUND ANTENATAL SCREEN ABNORMAL [None]
